FAERS Safety Report 7649460-3 (Version None)
Quarter: 2011Q3

REPORT INFORMATION
  Report Type: 
  Country: None (occurrence: None)
  Receive Date: 20110802
  Receipt Date: 20110723
  Transmission Date: 20111222
  Serious: Yes (Hospitalization)
  Sender: FDA-Public Use
  Company Number: MT-JNJFOC-20110711336

PATIENT
  Sex: Male

DRUGS (2)
  1. XARELTO [Suspect]
     Indication: ILL-DEFINED DISORDER
     Route: 048
     Dates: start: 20110627
  2. METHOTREXATE [Concomitant]
     Indication: PSORIASIS

REACTIONS (1)
  - DEEP VEIN THROMBOSIS [None]
